FAERS Safety Report 8191604-1 (Version None)
Quarter: 2012Q1

REPORT INFORMATION
  Report Type: 
  Country: None (occurrence: None)
  Receive Date: 20120307
  Receipt Date: 20120228
  Transmission Date: 20120608
  Serious: Yes (Life-Threatening, Hospitalization)
  Sender: FDA-Public Use
  Company Number: IT-ROCHE-1043873

PATIENT
  Sex: Male

DRUGS (3)
  1. OMEPRAZOLE [Concomitant]
     Route: 048
  2. MYCOPHENOLATE MOFETIL (CELLCEPT) [Suspect]
     Indication: AUTOIMMUNE LYMPHOPROLIFERATIVE SYNDROME
     Route: 048
     Dates: start: 20120203, end: 20120208
  3. CLARITROMICINA [Concomitant]

REACTIONS (3)
  - SOPOR [None]
  - RESTLESSNESS [None]
  - ALTERED STATE OF CONSCIOUSNESS [None]
